FAERS Safety Report 14014325 (Version 1)
Quarter: 2017Q3

REPORT INFORMATION
  Report Type: Spontaneous
  Country: US (occurrence: US)
  Receive Date: 20170927
  Receipt Date: 20170927
  Transmission Date: 20171128
  Serious: Yes (Hospitalization)
  Sender: FDA-Public Use
  Company Number: US-ASTRAZENECA-2017SE96309

PATIENT
  Sex: Male
  Weight: 99.8 kg

DRUGS (1)
  1. BYETTA [Suspect]
     Active Substance: EXENATIDE
     Indication: TYPE 2 DIABETES MELLITUS
     Route: 058

REACTIONS (5)
  - Coronary artery occlusion [Recovered/Resolved]
  - Post procedural contusion [Unknown]
  - Contusion [Unknown]
  - Scar [Not Recovered/Not Resolved]
  - Intentional device misuse [Unknown]
